FAERS Safety Report 9206820 (Version 1)
Quarter: 2013Q2

REPORT INFORMATION
  Report Type: Spontaneous
  Country: FR (occurrence: FR)
  Receive Date: 20130403
  Receipt Date: 20130403
  Transmission Date: 20140414
  Serious: Yes (Other)
  Sender: FDA-Public Use
  Company Number: FR-GALDERMA-FR13000969

PATIENT
  Age: 64 Year
  Sex: Female

DRUGS (1)
  1. ROZEX (METRONIDAZOLE) [Suspect]
     Indication: ROSACEA
     Dosage: 0.75%
     Route: 061
     Dates: start: 201001, end: 201301

REACTIONS (5)
  - Neuralgia [Not Recovered/Not Resolved]
  - Oedema peripheral [Not Recovered/Not Resolved]
  - Paraesthesia [None]
  - Pain in extremity [None]
  - Burning sensation [None]
